FAERS Safety Report 4527786-X (Version None)
Quarter: 2004Q4

REPORT INFORMATION
  Report Type: 
  Country: None (occurrence: None)
  Receive Date: 20041215
  Receipt Date: 20040921
  Transmission Date: 20050328
  Serious: Yes (Other)
  Sender: FDA-Public Use
  Company Number: 12692190

PATIENT
  Age: 56 Year
  Sex: Female

DRUGS (3)
  1. ZIDOVUDINE [Suspect]
     Indication: HIV INFECTION
     Dates: start: 20040325
  2. DIDANOSINE [Suspect]
     Indication: HIV INFECTION
     Dates: start: 20040325
  3. NEVIRAPINE [Suspect]
     Indication: HIV INFECTION
     Dates: start: 20040325

REACTIONS (2)
  - BLOOD AMYLASE ABNORMAL [None]
  - LIPASE INCREASED [None]
